FAERS Safety Report 7285094-0 (Version None)
Quarter: 2011Q1

REPORT INFORMATION
  Report Type: 
  Country: None (occurrence: None)
  Receive Date: 20110210
  Receipt Date: 20110131
  Transmission Date: 20110831
  Serious: No
  Sender: FDA-Public Use
  Company Number: PHHY2010US88896

PATIENT
  Sex: Female

DRUGS (3)
  1. TASIGNA [Suspect]
     Dosage: 300 MG, BID
     Route: 048
  2. TASIGNA [Suspect]
     Indication: CHRONIC MYELOID LEUKAEMIA
     Dosage: 400 MG, BID
     Route: 048
     Dates: start: 20100812
  3. TASIGNA [Suspect]
     Dosage: 300 MG, QD
     Route: 048

REACTIONS (3)
  - INCORRECT DOSE ADMINISTERED [None]
  - RASH GENERALISED [None]
  - RASH PRURITIC [None]
